FAERS Safety Report 12466025 (Version 1)
Quarter: 2016Q2

REPORT INFORMATION
  Report Type: Spontaneous
  Country: FR (occurrence: FR)
  Receive Date: 20160614
  Receipt Date: 20160614
  Transmission Date: 20160815
  Serious: Yes (Hospitalization, Other)
  Sender: FDA-Public Use
  Company Number: FR-BRISTOL-MYERS SQUIBB COMPANY-BMS-2016-025750

PATIENT
  Age: 82 Year
  Sex: Female
  Weight: 37 kg

DRUGS (13)
  1. OPDIVO [Suspect]
     Active Substance: NIVOLUMAB
     Dosage: 105 MG, UNK
     Route: 065
     Dates: start: 20160119
  2. OPDIVO [Suspect]
     Active Substance: NIVOLUMAB
     Dosage: 105 MG, UNK
     Route: 065
     Dates: start: 20160301
  3. OPDIVO [Suspect]
     Active Substance: NIVOLUMAB
     Dosage: 100 MG, UNK
     Route: 065
     Dates: start: 20160419
  4. ATORVASTATIN [Concomitant]
     Active Substance: ATORVASTATIN
     Indication: PRODUCT USED FOR UNKNOWN INDICATION
     Route: 065
  5. OPDIVO [Suspect]
     Active Substance: NIVOLUMAB
     Dosage: 105 MG, UNK
     Route: 065
     Dates: start: 20160216
  6. SOTALOL. [Concomitant]
     Active Substance: SOTALOL
     Indication: PRODUCT USED FOR UNKNOWN INDICATION
     Route: 065
  7. OPDIVO [Suspect]
     Active Substance: NIVOLUMAB
     Dosage: 105 MG, UNK
     Route: 065
     Dates: start: 20160202
  8. KARDEGIC [Concomitant]
     Active Substance: ASPIRIN LYSINE
     Indication: PRODUCT USED FOR UNKNOWN INDICATION
     Route: 065
  9. OPDIVO [Suspect]
     Active Substance: NIVOLUMAB
     Indication: OESOPHAGEAL CARCINOMA
     Dosage: 105 MG, UNK
     Route: 065
     Dates: start: 20151218
  10. OPDIVO [Suspect]
     Active Substance: NIVOLUMAB
     Dosage: 105 MG, UNK
     Route: 065
     Dates: start: 20160104
  11. EXFORGE [Concomitant]
     Active Substance: AMLODIPINE BESYLATE\VALSARTAN
     Indication: PRODUCT USED FOR UNKNOWN INDICATION
     Route: 065
  12. OPDIVO [Suspect]
     Active Substance: NIVOLUMAB
     Dosage: 105 MG, UNK
     Route: 065
     Dates: start: 20160315
  13. OPDIVO [Suspect]
     Active Substance: NIVOLUMAB
     Dosage: 105 MG, UNK
     Route: 065
     Dates: start: 20160405

REACTIONS (7)
  - Pyrexia [Recovered/Resolved]
  - Oesophageal obstruction [Unknown]
  - Abdominal pain [Recovered/Resolved]
  - Rash [Recovered/Resolved]
  - Lung disorder [Recovered/Resolved]
  - Eczema [Recovered/Resolved]
  - Stomatitis [Recovered/Resolved]

NARRATIVE: CASE EVENT DATE: 20160307
